FAERS Safety Report 15363764 (Version 1)
Quarter: 2018Q3

REPORT INFORMATION
  Report Type: Report from Study
  Country: US (occurrence: US)
  Receive Date: 20180908
  Receipt Date: 20180908
  Transmission Date: 20181010
  Serious: No
  Sender: FDA-Public Use
  Company Number: PHEH2018US037200

PATIENT
  Sex: Male

DRUGS (1)
  1. COSENTYX [Suspect]
     Active Substance: SECUKINUMAB
     Indication: PSORIATIC ARTHROPATHY
     Dosage: 150 MG, BIW (SUNDAY, THURSDAY)
     Route: 058

REACTIONS (3)
  - Movement disorder [Unknown]
  - Fatigue [Unknown]
  - Inappropriate schedule of drug administration [Unknown]
